FAERS Safety Report 8576473-X (Version None)
Quarter: 2012Q3

REPORT INFORMATION
  Report Type: 
  Country: None (occurrence: None)
  Receive Date: 20120807
  Receipt Date: 20120731
  Transmission Date: 20120928
  Serious: No
  Sender: FDA-Public Use
  Company Number: US-B.I. PHARMACEUTICALS,INC./RIDGEFIELD-2012-BP-15148BP

PATIENT
  Sex: Female

DRUGS (15)
  1. FLUTICASONE FUROATE [Concomitant]
     Indication: RHINITIS ALLERGIC
     Route: 045
  2. FENTANYL [Concomitant]
     Indication: PAIN
     Route: 061
  3. LORATADINE [Concomitant]
     Indication: RHINITIS ALLERGIC
     Dosage: 10 MG
     Route: 048
  4. ENBREL [Concomitant]
     Indication: RHEUMATOID ARTHRITIS
     Route: 058
  5. NYSTATIN [Concomitant]
  6. ACETAMINOPHEN [Concomitant]
     Indication: PAIN
     Route: 048
  7. LIDODERM [Concomitant]
  8. MUCINEX [Concomitant]
     Dosage: 1200 MG
     Route: 048
  9. SINEMET [Concomitant]
     Indication: PARKINSON'S DISEASE
  10. XOPENEX [Concomitant]
     Route: 055
  11. RALOXIFENE HYDROCHLORIDE [Concomitant]
     Indication: OSTEOPOROSIS
     Dosage: 60 MG
     Route: 048
  12. LEVOTHYROXINE SODIUM [Concomitant]
     Indication: HYPOTHYROIDISM
     Route: 048
  13. PANTOPRAZOLE [Concomitant]
     Dosage: 40 MG
     Route: 048
  14. ERGOCALCIFEROL [Concomitant]
  15. MIRAPEX [Suspect]
     Indication: PARKINSON'S DISEASE
     Dosage: 4.5 MG
     Route: 048
     Dates: start: 20120706, end: 20120706

REACTIONS (1)
  - VIBRATORY SENSE INCREASED [None]
